FAERS Safety Report 5729289-3 (Version None)
Quarter: 2008Q2

REPORT INFORMATION
  Report Type: 
  Country: None (occurrence: None)
  Receive Date: 20080506
  Receipt Date: 20080424
  Transmission Date: 20081010
  Serious: Yes (Hospitalization)
  Sender: FDA-Public Use
  Company Number: FR-PFIZER INC-2008036606

PATIENT
  Sex: Male

DRUGS (5)
  1. LIPUR [Suspect]
     Route: 048
  2. OMIX [Suspect]
     Route: 048
  3. BETASERC [Suspect]
     Route: 048
  4. NOCTRAN 10 [Suspect]
     Route: 048
  5. VASTAREL [Suspect]
     Route: 048

REACTIONS (3)
  - PRURITUS [None]
  - RASH PAPULAR [None]
  - TOXIC SKIN ERUPTION [None]
